FAERS Safety Report 5097606-6 (Version None)
Quarter: 2006Q3

REPORT INFORMATION
  Report Type: 
  Country: None (occurrence: None)
  Receive Date: 20060901
  Receipt Date: 20060821
  Transmission Date: 20061208
  Serious: Yes (Other)
  Sender: FDA-Public Use
  Company Number: 2006101859

PATIENT
  Age: 44 Year
  Sex: Male
  Weight: 83.4619 kg

DRUGS (4)
  1. LYRICA [Suspect]
     Indication: NEURALGIA
     Dosage: 150 MG (75 MG, 2 IN 1 D)
     Dates: start: 20060801, end: 20060820
  2. MORPHINE [Suspect]
     Indication: DRUG USE FOR UNKNOWN INDICATION
     Dosage: INTRATHECAL
     Route: 037
  3. MORPHINE SULFATE [Concomitant]
  4. DILAUDID [Concomitant]

REACTIONS (8)
  - ARTHRALGIA [None]
  - DRUG INEFFECTIVE [None]
  - ERYTHEMA [None]
  - NASAL DISCOMFORT [None]
  - NEURALGIA [None]
  - PYREXIA [None]
  - SKIN ULCER [None]
  - SURGERY [None]
